FAERS Safety Report 23068927 (Version 1)
Quarter: 2023Q4

REPORT INFORMATION
  Report Type: Spontaneous
  Country: GB (occurrence: GB)
  Receive Date: 20231016
  Receipt Date: 20231016
  Transmission Date: 20240110
  Serious: Yes (Hospitalization)
  Sender: FDA-Public Use
  Company Number: GB-VERTEX PHARMACEUTICALS-2023-015372

PATIENT
  Sex: Female

DRUGS (2)
  1. ELEXACAFTOR\IVACAFTOR\TEZACAFTOR [Suspect]
     Active Substance: ELEXACAFTOR\IVACAFTOR\TEZACAFTOR
     Indication: Cystic fibrosis
     Dosage: (75 MG IVACAFTOR, 50 MG TEZACAFTOR AND 100 MG ELEXACAFTOR) TWICE A DAY
     Route: 048
     Dates: start: 20210214
  2. KALYDECO [Suspect]
     Active Substance: IVACAFTOR
     Indication: Cystic fibrosis
     Dosage: 150 MILLIGRAM
     Route: 048
     Dates: start: 20210214

REACTIONS (4)
  - Hospitalisation [Unknown]
  - Cough [Not Recovered/Not Resolved]
  - Pulmonary function test decreased [Unknown]
  - Bronchial secretion retention [Not Recovered/Not Resolved]

NARRATIVE: CASE EVENT DATE: 20230101
